FAERS Safety Report 10136211 (Version 1)
Quarter: 2014Q2

REPORT INFORMATION
  Report Type: Report from Study
  Country: CH (occurrence: CH)
  Receive Date: 20140429
  Receipt Date: 20140429
  Transmission Date: 20141212
  Serious: Yes (Other)
  Sender: FDA-Public Use
  Company Number: CH-ROCHE-1385834

PATIENT
  Sex: Female

DRUGS (10)
  1. CAPECITABINE [Suspect]
     Indication: BREAST CANCER
     Route: 065
  2. TRASTUZUMAB [Suspect]
     Indication: BREAST CANCER
     Route: 065
  3. DOCETAXEL [Suspect]
     Indication: BREAST CANCER
     Route: 065
  4. PACLITAXEL [Suspect]
     Indication: BREAST CANCER
     Route: 065
  5. CYCLOPHOSPHAMIDE [Suspect]
     Indication: BREAST CANCER
     Route: 065
  6. METHOTREXATE [Suspect]
     Indication: BREAST CANCER
     Route: 065
  7. FLUOROURACIL [Suspect]
     Indication: BREAST CANCER
     Route: 065
  8. GEMCITABINE [Suspect]
     Indication: BREAST CANCER
     Route: 065
  9. VINORELBINE TARTRATE [Suspect]
     Indication: BREAST CANCER
     Route: 065
  10. LAPATINIB [Suspect]
     Indication: BREAST CANCER
     Route: 065

REACTIONS (12)
  - Neutropenia [Unknown]
  - Febrile neutropenia [Unknown]
  - Gastrointestinal infection [Unknown]
  - Abdominal pain [Unknown]
  - Respiratory tract infection [Unknown]
  - Lung infection [Unknown]
  - Myocardial ischaemia [Unknown]
  - Left ventricular dysfunction [Unknown]
  - Peripheral motor neuropathy [Unknown]
  - Musculoskeletal pain [Unknown]
  - Fatigue [Unknown]
  - Endometrial hypertrophy [Unknown]
